FAERS Safety Report 9486026 (Version 1)
Quarter: 2013Q3

REPORT INFORMATION
  Report Type: Report from Study
  Country: US (occurrence: US)
  Receive Date: 20130829
  Receipt Date: 20130829
  Transmission Date: 20140515
  Serious: Yes (Other)
  Sender: FDA-Public Use
  Company Number: US-JNJFOC-20130810176

PATIENT
  Age: 59 Year
  Sex: Male
  Weight: 81.65 kg

DRUGS (3)
  1. STELARA [Suspect]
     Indication: PSORIASIS
     Route: 058
     Dates: start: 201306
  2. LIPITOR [Concomitant]
     Indication: BLOOD CHOLESTEROL
     Route: 048
     Dates: start: 2010
  3. SYNTHROID [Concomitant]
     Indication: HYPOTHYROIDISM
     Dosage: STARTED 10 TO 15 YEARS AGO
     Route: 048

REACTIONS (2)
  - Prostatic specific antigen increased [Unknown]
  - Red blood cell count decreased [Unknown]
